FAERS Safety Report 17754700 (Version 1)
Quarter: 2020Q2

REPORT INFORMATION
  Report Type: Spontaneous
  Country: CN (occurrence: CN)
  Receive Date: 20200506
  Receipt Date: 20200506
  Transmission Date: 20200714
  Serious: Yes (Other)
  Sender: FDA-Public Use
  Company Number: CN-BAXTER-2020BAX009587

PATIENT
  Age: 60 Year
  Sex: Female
  Weight: 69 kg

DRUGS (4)
  1. ENDOXAN [Suspect]
     Active Substance: CYCLOPHOSPHAMIDE
     Indication: BREAST CANCER FEMALE
     Dosage: ENDOXAN 1000 MG+ NS 50 ML, FIRST CHEMOTHERAPY
     Route: 042
     Dates: start: 20200309, end: 20200309
  2. 0.9% SODIUM CHLORIDE INJECTION [Suspect]
     Active Substance: SODIUM CHLORIDE
     Indication: MEDICATION DILUTION
     Dosage: ENDOXAN 1000 MG+ NS 50 ML, FIRST CHEMOTHERAPY
     Route: 042
     Dates: start: 20200309, end: 20200309
  3. 0.9% SODIUM CHLORIDE INJECTION [Suspect]
     Active Substance: SODIUM CHLORIDE
     Dosage: PHARMORUBICIN 145 MG+ NS 100 ML, FIRST CHEMOTHERAPY
     Route: 041
     Dates: start: 20200309, end: 20200309
  4. PHARMORUBICIN [Suspect]
     Active Substance: EPIRUBICIN
     Indication: BREAST CANCER FEMALE
     Dosage: PHARMORUBICIN 145 MG+ NS 100 ML, FIRST CHEMOTHERAPY
     Route: 041
     Dates: start: 20200309, end: 20200309

REACTIONS (1)
  - Agranulocytosis [Recovered/Resolved]

NARRATIVE: CASE EVENT DATE: 20200320
